FAERS Safety Report 8589467 (Version 4)
Quarter: 2014Q2

REPORT INFORMATION
  Report Type: Spontaneous
  Country: US (occurrence: US)
  Receive Date: 20120531
  Receipt Date: 20140505
  Transmission Date: 20141212
  Serious: Yes (Other)
  Sender: FDA-Public Use
  Company Number: CHPA2012US011268

PATIENT
  Age: 69 Year
  Sex: Female

DRUGS (6)
  1. EXCEDRIN MIGRAINE [Suspect]
     Indication: MIGRAINE
     Dosage: UNK DF, UNK
     Route: 048
     Dates: start: 1998
  2. EXCEDRIN MIGRAINE [Suspect]
     Indication: HEADACHE
  3. EXCEDRIN MIGRAINE [Suspect]
     Indication: OFF LABEL USE
  4. EXCEDRIN TENSION HEADACHE [Suspect]
     Indication: MIGRAINE
     Dosage: 2 DF, UNK
     Route: 048
     Dates: start: 1964
  5. EXCEDRIN TENSION HEADACHE [Suspect]
     Indication: OFF LABEL USE
  6. TREXIMET [Concomitant]
     Indication: MIGRAINE
     Dosage: UNK

REACTIONS (7)
  - Vaginal haemorrhage [Recovered/Resolved]
  - Rotator cuff syndrome [Recovered/Resolved]
  - Malaise [Recovered/Resolved]
  - Musculoskeletal pain [Not Recovered/Not Resolved]
  - Medication overuse headache [Recovered/Resolved]
  - Arthritis [Not Recovered/Not Resolved]
  - Drug ineffective [Unknown]
